FAERS Safety Report 7557961-1 (Version None)
Quarter: 2011Q2

REPORT INFORMATION
  Report Type: 
  Country: None (occurrence: None)
  Receive Date: 20110620
  Receipt Date: 20110610
  Transmission Date: 20111010
  Serious: Yes (Hospitalization)
  Sender: FDA-Public Use
  Company Number: US-ASTRAZENECA-2011SE16667

PATIENT
  Age: 82 Year
  Sex: Female

DRUGS (3)
  1. NEXIUM [Suspect]
     Indication: GASTROOESOPHAGEAL REFLUX DISEASE
     Dosage: DAILY
     Route: 048
  2. NEXIUM [Suspect]
     Indication: HIATUS HERNIA
     Dosage: DAILY
     Route: 048
  3. CRESTOR [Suspect]
     Route: 048

REACTIONS (8)
  - STENT PLACEMENT [None]
  - DIARRHOEA [None]
  - DRUG DOSE OMISSION [None]
  - EMOTIONAL DISTRESS [None]
  - CARDIAC OPERATION [None]
  - OFF LABEL USE [None]
  - ALOPECIA [None]
  - STRESS [None]
